FAERS Safety Report 4268571-6 (Version None)
Quarter: 2004Q1

REPORT INFORMATION
  Report Type: 
  Country: None (occurrence: None)
  Receive Date: 20040112
  Receipt Date: 20030618
  Transmission Date: 20041129
  Serious: Yes (Hospitalization)
  Sender: FDA-Public Use
  Company Number: PHHO2003US07863

PATIENT
  Age: 64 Year
  Sex: Male
  Weight: 75 kg

DRUGS (20)
  1. ERL 080A [Suspect]
     Indication: HEART TRANSPLANT
     Dosage: 3 TABS BID
     Route: 048
     Dates: start: 20030212
  2. ERL 080A [Suspect]
     Dosage: 1 TABLET BID
     Route: 048
  3. NEORAL [Suspect]
     Indication: HEART TRANSPLANT
     Dosage: 325 MG, QD
     Route: 048
     Dates: start: 20030212
  4. NEORAL [Suspect]
     Dosage: 175 MG, BID
  5. PREDNISONE [Suspect]
     Indication: HEART TRANSPLANT
     Dosage: 10 MG, QD
     Route: 048
     Dates: start: 20030210
  6. ASPIRIN [Concomitant]
     Dosage: 81 MG, QD
     Route: 048
  7. SEPTRA [Concomitant]
     Route: 048
  8. CALCIUM [Concomitant]
     Dosage: 1500, QW3
     Route: 065
  9. ERGOCALCIFEROL [Concomitant]
     Dosage: 50000, QW
     Route: 065
  10. MAGNESIUM [Concomitant]
     Dosage: 400 BID
     Route: 065
  11. PEPCID [Concomitant]
     Dosage: 20, QD
     Route: 048
  12. PRAVACHOL [Concomitant]
     Dosage: 20 QHS
     Route: 065
  13. FOSAMAX [Concomitant]
     Dosage: 70  QW
     Route: 042
  14. COLACE [Concomitant]
     Dosage: 200 UNK, BID
     Route: 048
  15. SENNA [Concomitant]
     Dosage: 1  PRN
     Route: 048
  16. LACTULOSE [Concomitant]
     Dosage: PRN
     Route: 048
  17. RESTORIL [Concomitant]
     Dosage: UNK, PRN
     Route: 048
  18. PULMICORT [Concomitant]
     Dosage: PRN
  19. ROBITUSSIN [Concomitant]
     Dosage: PRN
     Route: 065
  20. FLORINEF [Concomitant]
     Dosage: .1 MG, QOD
     Route: 065

REACTIONS (19)
  - ARTHRALGIA [None]
  - CHILLS [None]
  - COUGH [None]
  - CYTOMEGALOVIRUS COLITIS [None]
  - DIZZINESS [None]
  - DYSTROPHIA MYOTONICA [None]
  - FAECAL OCCULT BLOOD POSITIVE [None]
  - FATIGUE [None]
  - HEADACHE [None]
  - HYPOVOLAEMIA [None]
  - LARGE INTESTINAL ULCER [None]
  - LOOSE STOOLS [None]
  - MALAISE [None]
  - MYALGIA [None]
  - ORTHOSTATIC HYPOTENSION [None]
  - POSTNASAL DRIP [None]
  - PYREXIA [None]
  - SINUS CONGESTION [None]
  - SINUSITIS [None]
